FAERS Safety Report 8911585 (Version 4)
Quarter: 2012Q4

REPORT INFORMATION
  Report Type: 
  Country: JP (occurrence: JP)
  Receive Date: 20121116
  Receipt Date: 20121205
  Transmission Date: 20130627
  Serious: Yes (Hospitalization)
  Sender: FDA-Public Use
  Company Number: JP-JNJFOC-20121105949

PATIENT
  Age: 95 Year
  Sex: Female
  Weight: 39 kg

DRUGS (1)
  1. TRAMCET [Suspect]
     Indication: PRODUCT USED FOR UNKNOWN INDICATION
     Dosage: 2 per 1 day
     Route: 048
     Dates: start: 201210

REACTIONS (1)
  - Hepatic function abnormal [Unknown]
